FAERS Safety Report 6025464-1 (Version None)
Quarter: 2008Q4

REPORT INFORMATION
  Report Type: 
  Country: None (occurrence: None)
  Receive Date: 20081231
  Receipt Date: 20081219
  Transmission Date: 20090506
  Serious: Yes (Disabling, Other)
  Sender: FDA-Public Use
  Company Number: GB-PFIZER INC-2008158979

PATIENT

DRUGS (2)
  1. NICOTINE [Suspect]
     Indication: SMOKING CESSATION THERAPY
     Dosage: UNSPECIFIED TWICE AN HOUR WHEN AWAKE
  2. NIQUITIN [Suspect]
     Indication: SMOKING CESSATION THERAPY
     Dosage: UNSPECIFIED
     Route: 062

REACTIONS (4)
  - BLINDNESS [None]
  - NASOPHARYNGITIS [None]
  - OCULAR HYPERAEMIA [None]
  - VISION BLURRED [None]
